FAERS Safety Report 10016567 (Version 2)
Quarter: 2014Q2

REPORT INFORMATION
  Report Type: Spontaneous
  Country: JP (occurrence: JP)
  Receive Date: 20140317
  Receipt Date: 20140402
  Transmission Date: 20141212
  Serious: No
  Sender: FDA-Public Use
  Company Number: JP-009507513-1403JPN007744

PATIENT
  Sex: 0

DRUGS (1)
  1. JANUVIA TABLETS 50MG [Suspect]
     Dosage: DAILY DOSAGE UNKNOWN
     Route: 048

REACTIONS (1)
  - Interstitial lung disease [Unknown]
